FAERS Safety Report 16034630 (Version 1)
Quarter: 2019Q1

REPORT INFORMATION
  Report Type: Spontaneous
  Country: DE (occurrence: DE)
  Receive Date: 20190305
  Receipt Date: 20190305
  Transmission Date: 20190418
  Serious: Yes (Other)
  Sender: FDA-Public Use
  Company Number: DE-HORIZON-PRE-0100-2019

PATIENT
  Age: 70 Year
  Sex: Female

DRUGS (4)
  1. TEBONIN [Concomitant]
     Active Substance: GINKGO
  2. SALLAKI INCENSE [Concomitant]
  3. INSULIN [Concomitant]
     Active Substance: INSULIN NOS
  4. LODOTRA 5 MG [Suspect]
     Active Substance: PREDNISONE
     Indication: POLYARTHRITIS
     Dosage: 5 MG ONCE DAILY
     Dates: start: 2012

REACTIONS (12)
  - Visual impairment [Not Recovered/Not Resolved]
  - Blood glucose increased [Unknown]
  - Skin atrophy [Unknown]
  - Weight decreased [Unknown]
  - Hand deformity [Unknown]
  - Headache [Unknown]
  - Drug dependence [Unknown]
  - Muscle atrophy [Unknown]
  - Muscular weakness [Unknown]
  - Foot deformity [Unknown]
  - Pain in extremity [Unknown]
  - Muscle spasms [Unknown]

NARRATIVE: CASE EVENT DATE: 201902
